FAERS Safety Report 6557725-1 (Version None)
Quarter: 2010Q1

REPORT INFORMATION
  Report Type: 
  Country: None (occurrence: None)
  Receive Date: 20100129
  Receipt Date: 20100115
  Transmission Date: 20100710
  Serious: No
  Sender: FDA-Public Use
  Company Number: US-B.I. PHARMACEUTICALS,INC./RIDGEFIELD-2010-BP-00520BP

PATIENT
  Age: 58 Year
  Sex: Female

DRUGS (3)
  1. MIRAPEX [Suspect]
     Indication: PARKINSON'S DISEASE
     Dosage: 0.5 MG
     Route: 048
     Dates: start: 20100115
  2. METOPROLOL [Concomitant]
     Indication: HYPERTENSION
  3. CARBIDOPA-LEVODOPA [Concomitant]
     Indication: PARKINSON'S DISEASE

REACTIONS (2)
  - DIZZINESS [None]
  - HYPOTENSION [None]
